FAERS Safety Report 5822973-2 (Version None)
Quarter: 2008Q3

REPORT INFORMATION
  Report Type: 
  Country: None (occurrence: None)
  Receive Date: 20080725
  Receipt Date: 20080721
  Transmission Date: 20090109
  Serious: Yes (Death)
  Sender: FDA-Public Use
  Company Number: A0739605A

PATIENT
  Age: 71 Year
  Sex: Female
  Weight: 70 kg

DRUGS (7)
  1. SERETIDE [Suspect]
     Indication: CHRONIC OBSTRUCTIVE PULMONARY DISEASE
     Route: 055
     Dates: start: 20070301, end: 20080302
  2. PREDNISOLONE [Concomitant]
     Dosage: 20MG PER DAY
     Route: 048
     Dates: start: 19780101, end: 20080302
  3. AMLODIPINE BESYLATE [Concomitant]
     Dates: start: 20071201, end: 20080302
  4. METFORMIN HCL [Concomitant]
     Dates: start: 20071201, end: 20080302
  5. DIAMICRON [Concomitant]
     Dates: start: 20080201, end: 20080302
  6. OMEPRAZOLE [Concomitant]
     Dates: start: 20030101, end: 20080302
  7. AMIODARONE HCL [Concomitant]
     Dates: start: 20050101, end: 20080302

REACTIONS (1)
  - INFARCTION [None]
